FAERS Safety Report 9457504 (Version 1)
Quarter: 2013Q3

REPORT INFORMATION
  Report Type: Spontaneous
  Country: US (occurrence: None)
  Receive Date: 20130812
  Receipt Date: 20130812
  Transmission Date: 20140515
  Serious: Yes (Other)
  Sender: FDA-Public Use
  Company Number: None

PATIENT
  Age: 46 Year
  Sex: Female
  Weight: 58.06 kg

DRUGS (1)
  1. AVELOX [Suspect]
     Indication: SINUSITIS
     Dosage: 1 PILL FOR 7 DAYS ONCE DAILY TAKEN BY MOUTH
     Route: 048
     Dates: start: 20130808, end: 20130808

REACTIONS (5)
  - Dizziness [None]
  - Asthenia [None]
  - Abasia [None]
  - Sensation of heaviness [None]
  - Tendon pain [None]
